FAERS Safety Report 9741391 (Version 1)
Quarter: 2013Q4

REPORT INFORMATION
  Report Type: Spontaneous
  Country: US (occurrence: US)
  Receive Date: 20131209
  Receipt Date: 20131209
  Transmission Date: 20140711
  Serious: Yes (Other)
  Sender: FDA-Public Use
  Company Number: US-ELI_LILLY_AND_COMPANY-US201312000806

PATIENT
  Age: 76 Year
  Sex: Female

DRUGS (2)
  1. FORTEO [Suspect]
     Indication: FRACTURE
     Dosage: 20 UG, QD
     Route: 065
     Dates: start: 20120413, end: 20130313
  2. FORTEO [Suspect]
     Indication: SPINAL FRACTURE

REACTIONS (2)
  - Lung cancer metastatic [Unknown]
  - Off label use [Unknown]
